FAERS Safety Report 16872075 (Version 2)
Quarter: 2019Q4

REPORT INFORMATION
  Report Type: Spontaneous
  Country: CN (occurrence: CN)
  Receive Date: 20191001
  Receipt Date: 20191008
  Transmission Date: 20200122
  Serious: Yes (Hospitalization, Other)
  Sender: FDA-Public Use
  Company Number: CN-ROCHE-2415071

PATIENT
  Age: 60 Year
  Sex: Male

DRUGS (35)
  1. BEVACIZUMAB. [Suspect]
     Active Substance: BEVACIZUMAB
     Indication: METASTASES TO LIVER
     Dosage: ON DAY 1; 3 WEEKS AS A CYCLE; FOR 9TH TO 13TH, 16TH TO 24TH CHEMOTHERAPY
     Route: 041
     Dates: start: 20170213, end: 2017
  2. CETUXIMAB. [Suspect]
     Active Substance: CETUXIMAB
     Route: 065
     Dates: start: 20190506
  3. EPIRUBICIN [Suspect]
     Active Substance: EPIRUBICIN
     Indication: METASTASES TO LIVER
  4. OXALIPLATIN. [Suspect]
     Active Substance: OXALIPLATIN
     Indication: COLON CANCER
     Dosage: ON DAY 1; 3 WEEKS AS A CYCLE
     Route: 041
     Dates: start: 20160825, end: 20161027
  5. OXALIPLATIN. [Suspect]
     Active Substance: OXALIPLATIN
     Indication: METASTASES TO ADRENALS
     Dosage: ON DAY 1; 3 WEEKS AS A CYCLE; FOR 7TH CHEMOTHERAPY
     Route: 041
     Dates: start: 2017, end: 2017
  6. RALTITREXED [Suspect]
     Active Substance: RALTITREXED
     Indication: METASTASES TO LIVER
     Dosage: ON DAY 1, 21 DAYS AS A CYCLE; FOR ONCE
     Route: 041
     Dates: start: 20190409
  7. FLUOROURACIL. [Suspect]
     Active Substance: FLUOROURACIL
     Indication: METASTASES TO ADRENALS
  8. BEVACIZUMAB. [Suspect]
     Active Substance: BEVACIZUMAB
     Indication: COLON CANCER
     Dosage: ON DAY 1; 3 WEEKS AS A CYCLE
     Route: 041
     Dates: start: 20161119, end: 20170123
  9. CAPECITABINE. [Suspect]
     Active Substance: CAPECITABINE
     Indication: METASTASES TO LIVER
     Dosage: FROM DAY 1 TO DAY 14; 3 WEEKS AS A CYCLE
     Route: 048
     Dates: start: 20161119, end: 20170123
  10. LOBAPLATIN [Suspect]
     Active Substance: LOBAPLATIN
     Indication: METASTASES TO ADRENALS
  11. GELATIN [Suspect]
     Active Substance: GELATIN
     Indication: METASTASES TO ADRENALS
  12. EPIRUBICIN [Suspect]
     Active Substance: EPIRUBICIN
     Indication: METASTASES TO ADRENALS
  13. RALTITREXED [Suspect]
     Active Substance: RALTITREXED
     Indication: COLON CANCER
     Route: 065
     Dates: start: 201712
  14. GELATIN [Suspect]
     Active Substance: GELATIN
     Indication: COLON CANCER
     Route: 065
     Dates: start: 201712
  15. GELATIN [Suspect]
     Active Substance: GELATIN
     Indication: METASTASES TO LIVER
  16. IRINOTECAN [Suspect]
     Active Substance: IRINOTECAN
     Indication: METASTASES TO LIVER
     Route: 065
     Dates: start: 20180523
  17. CETUXIMAB. [Suspect]
     Active Substance: CETUXIMAB
     Indication: METASTASES TO LIVER
     Dosage: TARGETED MAINTENANCE THERAPY
     Route: 041
     Dates: start: 20181126
  18. EPIRUBICIN [Suspect]
     Active Substance: EPIRUBICIN
     Indication: COLON CANCER
     Route: 065
     Dates: start: 20190327
  19. CAPECITABINE. [Suspect]
     Active Substance: CAPECITABINE
     Indication: METASTASES TO LIVER
     Dosage: FROM DAY 1 TO DAY 14; 3 WEEKS AS A CYCLE
     Route: 048
     Dates: start: 20170213, end: 201710
  20. CAPECITABINE. [Suspect]
     Active Substance: CAPECITABINE
     Dosage: FROM DAY 1 TO DAY 14
     Route: 048
     Dates: start: 20190509
  21. OXALIPLATIN. [Suspect]
     Active Substance: OXALIPLATIN
     Indication: METASTASES TO LIVER
     Dosage: ON DAY 1; 3 WEEKS AS A CYCLE
     Route: 041
     Dates: start: 20161119, end: 2017
  22. RALTITREXED [Suspect]
     Active Substance: RALTITREXED
     Indication: METASTASES TO ADRENALS
  23. IRINOTECAN [Suspect]
     Active Substance: IRINOTECAN
     Indication: COLON CANCER
     Dosage: ON DAY 1
     Route: 065
     Dates: start: 20180303
  24. IRINOTECAN [Suspect]
     Active Substance: IRINOTECAN
     Indication: METASTASES TO ADRENALS
     Route: 041
     Dates: start: 20180706, end: 20181114
  25. CETUXIMAB. [Suspect]
     Active Substance: CETUXIMAB
     Indication: COLON CANCER
     Route: 065
     Dates: start: 20180706, end: 20181114
  26. CETUXIMAB. [Suspect]
     Active Substance: CETUXIMAB
     Route: 065
     Dates: start: 20190327
  27. OXALIPLATIN. [Suspect]
     Active Substance: OXALIPLATIN
     Dosage: ON DAY 1; 3 WEEKS AS A CYCLE
     Route: 041
     Dates: start: 2017, end: 20170123
  28. LOBAPLATIN [Suspect]
     Active Substance: LOBAPLATIN
     Indication: METASTASES TO LIVER
  29. FLUOROURACIL. [Suspect]
     Active Substance: FLUOROURACIL
     Indication: METASTASES TO LIVER
  30. BEVACIZUMAB. [Suspect]
     Active Substance: BEVACIZUMAB
     Indication: METASTASES TO ADRENALS
     Route: 065
     Dates: start: 20180523
  31. OXALIPLATIN. [Suspect]
     Active Substance: OXALIPLATIN
     Dosage: ON DAY 1
     Route: 065
     Dates: start: 20190509
  32. LOBAPLATIN [Suspect]
     Active Substance: LOBAPLATIN
     Indication: COLON CANCER
     Route: 065
     Dates: start: 201712
  33. CETUXIMAB. [Suspect]
     Active Substance: CETUXIMAB
     Indication: METASTASES TO ADRENALS
     Route: 065
     Dates: start: 20190112, end: 20190311
  34. FLUOROURACIL. [Suspect]
     Active Substance: FLUOROURACIL
     Indication: COLON CANCER
     Dosage: 0.5 UNKNOWN UNIT BY INTRAVENOUS INJECTION, 3.75 UNKNOWN UNIT BY CONTINUOUS INTRAVENOUS INJECTION FOR
     Route: 042
     Dates: start: 20190112, end: 20190311
  35. CAPECITABINE. [Suspect]
     Active Substance: CAPECITABINE
     Indication: COLON CANCER
     Dosage: FROM DAY 1 TO DAY 14; 3 WEEKS AS A CYCLE
     Route: 048
     Dates: start: 20160825, end: 20161027

REACTIONS (12)
  - Nausea [Unknown]
  - Mouth ulceration [Unknown]
  - Diarrhoea [Unknown]
  - Pneumonitis [Unknown]
  - Vomiting [Unknown]
  - Asthenia [Unknown]
  - Renal cyst [Unknown]
  - Respiratory failure [Unknown]
  - Alopecia [Unknown]
  - Rash [Unknown]
  - Bone marrow failure [Unknown]
  - Septic shock [Unknown]

NARRATIVE: CASE EVENT DATE: 2018
